FAERS Safety Report 8109695-2 (Version None)
Quarter: 2012Q1

REPORT INFORMATION
  Report Type: 
  Country: None (occurrence: None)
  Receive Date: 20120202
  Receipt Date: 20120118
  Transmission Date: 20120608
  Serious: No
  Sender: FDA-Public Use
  Company Number: US-AMGEN-USASP2012003686

PATIENT
  Age: 47 Year
  Sex: Male

DRUGS (2)
  1. ENBREL [Suspect]
     Indication: PSORIASIS
     Dosage: 50 MG, QWK
     Dates: start: 20070101
  2. HUMIRA [Concomitant]
     Indication: PSORIASIS
     Dosage: UNK

REACTIONS (5)
  - DRUG INEFFECTIVE [None]
  - BRONCHITIS [None]
  - INJECTION SITE PAIN [None]
  - OROPHARYNGEAL PAIN [None]
  - INJECTION SITE URTICARIA [None]
